FAERS Safety Report 6334451-5 (Version None)
Quarter: 2009Q3

REPORT INFORMATION
  Report Type: 
  Country: None (occurrence: None)
  Receive Date: 20090831
  Receipt Date: 20071211
  Transmission Date: 20100115
  Serious: Yes (Hospitalization, Other)
  Sender: FDA-Public Use
  Company Number: US-ASTRAZENECA-2006UW17480

PATIENT
  Age: 54 Year
  Sex: Female
  Weight: 96.2 kg

DRUGS (30)
  1. SEROQUEL [Suspect]
     Indication: SCHIZOPHRENIA
     Route: 048
     Dates: start: 19980515, end: 20000101
  2. SEROQUEL [Suspect]
     Indication: DEPRESSION
     Route: 048
     Dates: start: 19980515, end: 20000101
  3. SEROQUEL [Suspect]
     Indication: MENTAL DISORDER
     Route: 048
     Dates: start: 19980515, end: 20000101
  4. SEROQUEL [Suspect]
     Route: 048
     Dates: start: 20000101, end: 20060301
  5. SEROQUEL [Suspect]
     Route: 048
     Dates: start: 20000101, end: 20060301
  6. SEROQUEL [Suspect]
     Route: 048
     Dates: start: 20000101, end: 20060301
  7. SEROQUEL [Suspect]
     Dosage: 25-300 MG
     Route: 048
     Dates: start: 20010328
  8. SEROQUEL [Suspect]
     Dosage: 25-300 MG
     Route: 048
     Dates: start: 20010328
  9. SEROQUEL [Suspect]
     Dosage: 25-300 MG
     Route: 048
     Dates: start: 20010328
  10. NAVANE [Concomitant]
     Dates: start: 20040101
  11. RISPERDAL [Concomitant]
     Dates: start: 20020101, end: 20060101
  12. ZYPREXA [Concomitant]
     Dates: start: 20040101, end: 20060101
  13. DILANTIN [Concomitant]
     Indication: CONVULSION
     Dosage: 200-400 MG DAILY
     Route: 048
     Dates: start: 20010328
  14. HYDROCHLOROTHIAZIDE [Concomitant]
     Route: 048
     Dates: start: 20020402
  15. PREMARIN [Concomitant]
     Dates: start: 20020402
  16. PAXIL [Concomitant]
     Indication: MENTAL DISORDER
     Route: 048
     Dates: start: 20020522
  17. NITROSTAT/NITROQUICK [Concomitant]
     Indication: CHEST PAIN
     Dosage: 0.4 MG ONE TAB FOR 5 MINUTES X 3, IF NEEDED
     Route: 060
     Dates: start: 20020123
  18. LOTRISONE [Concomitant]
     Dosage: STRENGTH: 1-0.05 PERCENT, APPLY TWICE TO AFFECTED AREA FOR 2 WEEKS
     Dates: start: 20030924
  19. LASIX [Concomitant]
     Indication: SWELLING
     Dosage: 20-40 MG DAILY
     Route: 048
     Dates: start: 20020522
  20. DIFLUCAN [Concomitant]
     Dates: start: 20051110
  21. ANUSOL HC [Concomitant]
     Indication: FAECES HARD
     Route: 054
     Dates: start: 20020402
  22. TRIAMCINOLONE ACETONIDE [Concomitant]
     Dosage: APPLY BID TO AFFECTED AREA AS REQUIRED
     Route: 061
     Dates: start: 20020522
  23. INDERAL LA [Concomitant]
     Route: 048
     Dates: start: 20060522
  24. GEODON [Concomitant]
     Route: 048
     Dates: start: 20020123
  25. PEG-INTRON [Concomitant]
     Indication: HEPATITIS C
     Dosage: STRENGTH: 120 MCG/0.5 ML KIT. DOSE: 0.5 ML DAILY
     Route: 058
     Dates: start: 20030117
  26. REBETOL [Concomitant]
     Indication: HEPATITIS C
     Dosage: 200 MG 3 CAP EVERY MORNING AND 2 EVERY EVENING
     Route: 048
     Dates: start: 20030117
  27. PHENERGAN [Concomitant]
     Indication: NAUSEA
     Dosage: 25 MG 1 TABLET EVERY 4-6 HOURS AS REQUIRED
     Route: 048
     Dates: start: 20020123
  28. PHENOBARBITAL [Concomitant]
     Indication: CONVULSION
     Route: 048
     Dates: start: 20010328
  29. PHENOBARBITAL [Concomitant]
     Indication: SCHIZOAFFECTIVE DISORDER
     Route: 048
     Dates: start: 20010328
  30. PHENOBARBITAL [Concomitant]
     Indication: DEPRESSION
     Route: 048
     Dates: start: 20010328

REACTIONS (6)
  - CONVULSION [None]
  - DIABETES MELLITUS [None]
  - DIABETES MELLITUS INADEQUATE CONTROL [None]
  - DIABETIC NEUROPATHY [None]
  - INCREASED APPETITE [None]
  - KETOACIDOSIS [None]
